FAERS Safety Report 11212275 (Version 2)
Quarter: 2015Q3

REPORT INFORMATION
  Report Type: Spontaneous
  Country: US (occurrence: US)
  Receive Date: 20150623
  Receipt Date: 20150730
  Transmission Date: 20151125
  Serious: Yes (Other)
  Sender: FDA-Public Use
  Company Number: US-PFIZER INC-2015205622

PATIENT
  Sex: Female

DRUGS (1)
  1. MORPHINE SULFATE. [Suspect]
     Active Substance: MORPHINE SULFATE
     Indication: PAIN
     Dosage: UNK

REACTIONS (4)
  - Throat tightness [Recovered/Resolved]
  - Malaise [Recovered/Resolved]
  - Rash [Recovered/Resolved]
  - Drug hypersensitivity [Recovered/Resolved]
